FAERS Safety Report 8761135 (Version 1)
Quarter: 2012Q4

REPORT INFORMATION
  Report Type: 
  Country: US (occurrence: US)
  Receive Date: 20120830
  Receipt Date: 20120830
  Transmission Date: 20130627
  Serious: Yes (Hospitalization)
  Sender: FDA-Public Use
  Company Number: US-MYLANLABS-2012S1016953

PATIENT
  Age: 60 Year
  Sex: Female

DRUGS (2)
  1. LITHIUM [Suspect]
     Indication: BIPOLAR DISORDER
     Dosage: 1200mg daily
     Route: 065
  2. LITHIUM [Suspect]
     Indication: BIPOLAR DISORDER
     Dosage: 300mg daily
     Route: 065

REACTIONS (2)
  - Symptom masked [Recovered/Resolved]
  - Iodine uptake decreased [Recovering/Resolving]
